FAERS Safety Report 6976428-2 (Version None)
Quarter: 2010Q3

REPORT INFORMATION
  Report Type: 
  Country: None (occurrence: None)
  Receive Date: 20100910
  Receipt Date: 20100830
  Transmission Date: 20110219
  Serious: Yes (Hospitalization, Other)
  Sender: FDA-Public Use
  Company Number: US-JNJFOC-20100605827

PATIENT
  Sex: Male
  Weight: 100.25 kg

DRUGS (12)
  1. REMICADE [Suspect]
     Indication: PSORIATIC ARTHROPATHY
     Route: 042
  2. REMICADE [Suspect]
     Route: 042
  3. REMICADE [Suspect]
     Route: 042
  4. REMICADE [Suspect]
     Route: 042
  5. REMICADE [Suspect]
     Route: 042
  6. ALBUTEROL [Concomitant]
  7. NASACORT [Concomitant]
     Route: 045
  8. OMEPRAZOLE [Concomitant]
  9. ASPIRIN [Concomitant]
  10. DICLOFENAC [Concomitant]
  11. METOPROLOL TARTRATE [Concomitant]
  12. SIMVASTATIN [Concomitant]

REACTIONS (3)
  - PERICARDIAL EFFUSION [None]
  - PLEUROPERICARDITIS [None]
  - SYSTEMIC LUPUS ERYTHEMATOSUS [None]
